FAERS Safety Report 8112228-8 (Version None)
Quarter: 2012Q1

REPORT INFORMATION
  Report Type: 
  Country: None (occurrence: None)
  Receive Date: 20120203
  Receipt Date: 20120131
  Transmission Date: 20120608
  Serious: No
  Sender: FDA-Public Use
  Company Number: US-PFIZER INC-2012026727

PATIENT
  Age: 20 Year
  Sex: Female

DRUGS (4)
  1. DEPO-PROVERA [Suspect]
     Indication: OFF LABEL USE
     Dosage: UNK, ONCE IN THREE MONTHS
     Route: 030
     Dates: start: 20110825
  2. DEPO-PROVERA [Suspect]
     Indication: MENSTRUAL DISCOMFORT
     Dosage: UNK
     Route: 030
  3. PROMETHAZINE [Concomitant]
     Indication: NAUSEA
     Dosage: 12.5 MG, 3X/DAY
  4. POTASSIUM PHOSPHATE [Concomitant]
     Dosage: UNK

REACTIONS (1)
  - METRORRHAGIA [None]
